FAERS Safety Report 5832091-5 (Version None)
Quarter: 2008Q3

REPORT INFORMATION
  Report Type: 
  Country: None (occurrence: None)
  Receive Date: 20080731
  Receipt Date: 20080731
  Transmission Date: 20090109
  Serious: No
  Sender: FDA-Public Use
  Company Number: None

PATIENT
  Age: 30 Year
  Sex: Female
  Weight: 72.5755 kg

DRUGS (2)
  1. LEVAQUIN [Suspect]
     Indication: SINUSITIS
     Dosage: 500MG  1XDAY FOR 15 DAYS PO
     Route: 048
     Dates: start: 20080227, end: 20080305
  2. LEVAQUIN [Suspect]
     Indication: UPPER RESPIRATORY TRACT INFECTION
     Dosage: 500MG  1XDAY FOR 15 DAYS PO
     Route: 048
     Dates: start: 20080227, end: 20080305

REACTIONS (5)
  - ARTHROPATHY [None]
  - CHONDROMALACIA [None]
  - JOINT DISLOCATION [None]
  - PAIN [None]
  - TENDONITIS [None]
